FAERS Safety Report 5912927-X (Version None)
Quarter: 2008Q4

REPORT INFORMATION
  Report Type: 
  Country: None (occurrence: None)
  Receive Date: 20081006
  Receipt Date: 20080925
  Transmission Date: 20090506
  Serious: Yes (Death)
  Sender: FDA-Public Use
  Company Number: CHPA2008US16112

PATIENT
  Age: 4 Month
  Sex: Male

DRUGS (2)
  1. PSEUDOEPHEDRINE HCL [Suspect]
  2. EPHEDRINE SUL CAP [Suspect]

REACTIONS (1)
  - UNRESPONSIVE TO STIMULI [None]
